FAERS Safety Report 4625302-5 (Version None)
Quarter: 2005Q2

REPORT INFORMATION
  Report Type: 
  Country: None (occurrence: None)
  Receive Date: 20050401
  Receipt Date: 20050324
  Transmission Date: 20051028
  Serious: Yes (Other)
  Sender: FDA-Public Use
  Company Number: PHNU2005DE01459

PATIENT
  Age: 75 Year
  Sex: Male

DRUGS (3)
  1. ELIGARD [Suspect]
     Dosage: 1 DF, ONCE/SINGLE
     Route: 058
     Dates: start: 20050318, end: 20050318
  2. ELIGARD [Suspect]
     Dosage: 1 DF, Q3MO
     Route: 058
     Dates: start: 20020101
  3. ZOMETA [Suspect]
     Indication: METASTASES TO BONE
     Dosage: 4 MG, ONCE/SINGLE
     Route: 042
     Dates: start: 20050315, end: 20050315

REACTIONS (2)
  - HAEMATURIA [None]
  - URINARY TRACT INFECTION [None]
